FAERS Safety Report 9183912 (Version 3)
Quarter: 2013Q4

REPORT INFORMATION
  Report Type: Report from Study
  Country: ES (occurrence: ES)
  Receive Date: 20130322
  Receipt Date: 20131125
  Transmission Date: 20140711
  Serious: Yes (Death, Hospitalization)
  Sender: FDA-Public Use
  Company Number: ES-CELGENEUS-144-C4047-13031107

PATIENT
  Age: 65 Year
  Sex: Female
  Weight: 65.8 kg

DRUGS (6)
  1. CC-4047 [Suspect]
     Indication: PLASMA CELL MYELOMA
     Dosage: 4 MILLIGRAM
     Route: 048
     Dates: start: 20130131, end: 20130221
  2. CC-4047 [Suspect]
     Route: 048
     Dates: start: 20130228, end: 20130308
  3. DEXAMETHASONE [Suspect]
     Indication: PLASMA CELL MYELOMA
     Dosage: 40 MILLIGRAM
     Route: 065
     Dates: start: 20130131, end: 20130221
  4. DEXAMETHASONE [Suspect]
     Route: 065
     Dates: start: 20130228, end: 20130308
  5. OMEPRAZOLE [Concomitant]
     Indication: PROPHYLAXIS
     Dosage: 20 MILLIGRAM
     Route: 048
     Dates: start: 20130131
  6. FENTANYL [Concomitant]
     Indication: PAIN
     Route: 062
     Dates: start: 20130307

REACTIONS (2)
  - Death [Fatal]
  - Pyrexia [Not Recovered/Not Resolved]
